FAERS Safety Report 16610117 (Version 1)
Quarter: 2019Q3

REPORT INFORMATION
  Report Type: Spontaneous
  Country: DE (occurrence: DE)
  Receive Date: 20190722
  Receipt Date: 20190722
  Transmission Date: 20191004
  Serious: Yes (Death, Hospitalization)
  Sender: FDA-Public Use
  Company Number: DE-TEVA-2019-DE-1080324

PATIENT
  Age: 72 Year
  Sex: Female

DRUGS (3)
  1. ACETYLSALICYLS?URE [Suspect]
     Active Substance: ASPIRIN
     Dosage: NK MG, NK
     Route: 065
  2. CLOPIDOGREL [Suspect]
     Active Substance: CLOPIDOGREL BISULFATE
     Dosage: NK MG, NK
     Route: 065
  3. HEPARIN [Suspect]
     Active Substance: HEPARIN SODIUM
     Dosage: NK MG, BEI DIALYSE
     Route: 065

REACTIONS (5)
  - Dyspnoea [Fatal]
  - Hallucination [Fatal]
  - General physical health deterioration [Fatal]
  - Depressed level of consciousness [Fatal]
  - Subdural haematoma [Fatal]
